FAERS Safety Report 21893877 (Version 1)
Quarter: 2023Q1

REPORT INFORMATION
  Report Type: Spontaneous
  Country: US (occurrence: US)
  Receive Date: 20230121
  Receipt Date: 20230121
  Transmission Date: 20230418
  Serious: Yes (Other)
  Sender: FDA-Public Use
  Company Number: US-AUROBINDO-AUR-APL-2022-009530

PATIENT
  Age: 40 Year

DRUGS (2)
  1. CLOZAPINE [Suspect]
     Active Substance: CLOZAPINE
     Indication: Product used for unknown indication
     Dosage: 150 MILLIGRAM, ONCE A DAY
     Route: 048
  2. CLOZAPINE [Suspect]
     Active Substance: CLOZAPINE
     Dosage: 50 MILLIGRAM, ONCE A DAY
     Route: 048
     Dates: start: 20220106, end: 20220106

REACTIONS (1)
  - White blood cell count decreased [Unknown]

NARRATIVE: CASE EVENT DATE: 20220106
